FAERS Safety Report 9152912 (Version 1)
Quarter: 2013Q1

REPORT INFORMATION
  Report Type: Spontaneous
  Country: US (occurrence: US)
  Receive Date: 20130124
  Receipt Date: 20130124
  Transmission Date: 20140127
  Serious: Yes (Other)
  Sender: FDA-Public Use
  Company Number: US-RB-046572-12

PATIENT
  Age: 49 Year
  Sex: Male

DRUGS (4)
  1. SUBOXONE FILM [Suspect]
     Indication: DRUG DEPENDENCE
     Dosage: SUBOXONE FILM
     Route: 048
     Dates: start: 2006
  2. COUMADIN [Concomitant]
     Indication: THROMBOSIS
     Dosage: DOSING DETAILS UNKNOWN
     Route: 048
  3. KLONOPIN [Concomitant]
     Indication: PRODUCT USED FOR UNKNOWN INDICATION
     Dosage: DOSING DETAILS UNKNOWN
     Route: 048
  4. FIORICET [Concomitant]
     Indication: HEADACHE
     Dosage: 1-2 TABLETS
     Route: 048

REACTIONS (4)
  - Angiopathy [Not Recovered/Not Resolved]
  - Headache [Not Recovered/Not Resolved]
  - Fatigue [Not Recovered/Not Resolved]
  - Thrombosis [Not Recovered/Not Resolved]
